FAERS Safety Report 18563558 (Version 4)
Quarter: 2021Q2

REPORT INFORMATION
  Report Type: Report from Study
  Country: AR (occurrence: AR)
  Receive Date: 20201201
  Receipt Date: 20210430
  Transmission Date: 20210717
  Serious: Yes (Hospitalization, Other)
  Sender: FDA-Public Use
  Company Number: AR-TAKEDA-2020TUS044257

PATIENT
  Sex: Male

DRUGS (1)
  1. IDURSULFASE [Suspect]
     Active Substance: IDURSULFASE
     Indication: MUCOPOLYSACCHARIDOSIS II
     Dosage: 0.5 MILLIGRAM/KILOGRAM, 1/WEEK
     Route: 042
     Dates: start: 20120206

REACTIONS (2)
  - Retinal oedema [Unknown]
  - Device related infection [Recovered/Resolved]

NARRATIVE: CASE EVENT DATE: 20140716
